FAERS Safety Report 24899941 (Version 1)
Quarter: 2025Q1

REPORT INFORMATION
  Report Type: Spontaneous
  Country: US (occurrence: US)
  Receive Date: 20250129
  Receipt Date: 20250129
  Transmission Date: 20250409
  Serious: No
  Sender: AMGEN
  Company Number: US-AMGEN-USASP2025015186

PATIENT
  Sex: Female

DRUGS (6)
  1. ENBREL [Suspect]
     Active Substance: ETANERCEPT
     Indication: Psoriatic arthropathy
     Route: 065
  2. ENBREL [Suspect]
     Active Substance: ETANERCEPT
     Indication: Psoriasis
  3. OTEZLA [Suspect]
     Active Substance: APREMILAST
     Indication: Psoriatic arthropathy
     Dosage: 30 MILLIGRAM, BID
     Route: 048
     Dates: start: 202412
  4. OTEZLA [Suspect]
     Active Substance: APREMILAST
     Indication: Psoriasis
  5. PRAVASTATIN [Concomitant]
     Active Substance: PRAVASTATIN
     Route: 065
  6. FLUOXETINE [Concomitant]
     Active Substance: FLUOXETINE HYDROCHLORIDE
     Route: 065

REACTIONS (10)
  - Pruritus [Unknown]
  - Erythema [Unknown]
  - Sinusitis [Unknown]
  - Abdominal distension [Recovering/Resolving]
  - Insomnia [Recovering/Resolving]
  - Pyrexia [Recovering/Resolving]
  - Myalgia [Recovering/Resolving]
  - Headache [Unknown]
  - Eructation [Recovering/Resolving]
  - Treatment noncompliance [Unknown]
